FAERS Safety Report 18245487 (Version 1)
Quarter: 2020Q3

REPORT INFORMATION
  Report Type: Report from Study
  Country: AT (occurrence: AT)
  Receive Date: 20200909
  Receipt Date: 20200909
  Transmission Date: 20201103
  Serious: Yes (Death, Other)
  Sender: FDA-Public Use
  Company Number: AT-AUROBINDO-AUR-APL-2020-046877

PATIENT
  Age: 60 Year
  Sex: Female

DRUGS (3)
  1. CLOMIPRAMINE [Suspect]
     Active Substance: CLOMIPRAMINE
     Indication: PRODUCT USED FOR UNKNOWN INDICATION
     Dosage: UNK
     Route: 065
  2. TRIMIPRAMINE [Suspect]
     Active Substance: TRIMIPRAMINE
     Indication: PRODUCT USED FOR UNKNOWN INDICATION
     Dosage: UNK
     Route: 065
  3. OLANZAPINE. [Suspect]
     Active Substance: OLANZAPINE
     Indication: PRODUCT USED FOR UNKNOWN INDICATION
     Dosage: UNK
     Route: 065

REACTIONS (3)
  - Myocardial ischaemia [Fatal]
  - Coma [Unknown]
  - Atrioventricular block [Fatal]
